FAERS Safety Report 9775951 (Version 2)
Quarter: 2014Q1

REPORT INFORMATION
  Report Type: Spontaneous
  Country: US (occurrence: US)
  Receive Date: 20131220
  Receipt Date: 20140128
  Transmission Date: 20141002
  Serious: Yes (Death, Other)
  Sender: FDA-Public Use
  Company Number: US-PURDUE-USA-2013-0109639

PATIENT
  Age: 58 Year
  Sex: Male

DRUGS (1)
  1. OXYCODONE HYDROCHLORIDE (SIMILAR TO NDA 22-272) [Suspect]
     Indication: PRODUCT USED FOR UNKNOWN INDICATION
     Route: 048

REACTIONS (5)
  - Gun shot wound [Fatal]
  - Aggression [Not Recovered/Not Resolved]
  - Altered state of consciousness [Unknown]
  - Abnormal behaviour [Unknown]
  - Dyspnoea [Unknown]
